FAERS Safety Report 14206161 (Version 1)
Quarter: 2017Q4

REPORT INFORMATION
  Report Type: Spontaneous
  Country: AU (occurrence: AU)
  Receive Date: 20171120
  Receipt Date: 20171120
  Transmission Date: 20180321
  Serious: Yes (Other)
  Sender: FDA-Public Use
  Company Number: AU-IMPAX LABORATORIES, INC-2017-IPXL-03197

PATIENT
  Age: 11 Year
  Sex: Female

DRUGS (2)
  1. DIVALPROEX SODIUM ER [Suspect]
     Active Substance: DIVALPROEX SODIUM
     Indication: PRODUCT USE ISSUE
  2. DIVALPROEX SODIUM ER [Suspect]
     Active Substance: DIVALPROEX SODIUM
     Indication: TEMPORAL LOBE EPILEPSY
     Dosage: 38 MG/KG, DAILY
     Route: 065

REACTIONS (4)
  - Toxic encephalopathy [Recovered/Resolved]
  - Drug administered to patient of inappropriate age [Unknown]
  - Product use issue [Unknown]
  - Toxicity to various agents [Recovered/Resolved]
